FAERS Safety Report 5470818-5 (Version None)
Quarter: 2007Q3

REPORT INFORMATION
  Report Type: 
  Country: None (occurrence: None)
  Receive Date: 20070928
  Receipt Date: 20070919
  Transmission Date: 20080115
  Serious: Yes (Other)
  Sender: FDA-Public Use
  Company Number: US-AMGEN-STX244122

PATIENT
  Sex: Female

DRUGS (3)
  1. ENBREL [Suspect]
     Indication: RHEUMATOID ARTHRITIS
     Route: 058
     Dates: start: 20070303
  2. ENBREL [Suspect]
     Indication: PULMONARY FIBROSIS
  3. CELLCEPT [Suspect]
     Dates: start: 20070914, end: 20070915

REACTIONS (2)
  - PULMONARY FIBROSIS [None]
  - TENDON PAIN [None]
